FAERS Safety Report 7634427-1 (Version None)
Quarter: 2011Q3

REPORT INFORMATION
  Report Type: 
  Country: None (occurrence: None)
  Receive Date: 20110725
  Receipt Date: 20110713
  Transmission Date: 20111222
  Serious: Yes (Other)
  Sender: FDA-Public Use
  Company Number: PHHY2011JP63662

PATIENT

DRUGS (1)
  1. ZOLEDRONIC ACID [Suspect]
     Dosage: UNK

REACTIONS (5)
  - GINGIVITIS [None]
  - PATHOLOGICAL FRACTURE [None]
  - SPINAL CORD COMPRESSION [None]
  - OSTEONECROSIS OF JAW [None]
  - OSTEOMYELITIS [None]
